FAERS Safety Report 13506842 (Version 1)
Quarter: 2017Q2

REPORT INFORMATION
  Report Type: Spontaneous
  Country: US (occurrence: US)
  Receive Date: 20170502
  Receipt Date: 20170502
  Transmission Date: 20170830
  Serious: No
  Sender: FDA-Public Use
  Company Number: US-BAUSCH-BL-2016-007876

PATIENT
  Age: 60 Year
  Sex: Female

DRUGS (4)
  1. LOTEMAX [Suspect]
     Active Substance: LOTEPREDNOL ETABONATE
     Indication: DRY EYE
     Route: 047
     Dates: start: 201510
  2. RESTASIS [Suspect]
     Active Substance: CYCLOSPORINE
     Indication: DRY EYE
     Route: 047
     Dates: start: 201510, end: 201602
  3. LOTEMAX [Suspect]
     Active Substance: LOTEPREDNOL ETABONATE
     Indication: DRY EYE
     Route: 047
     Dates: end: 201601
  4. GENTEAL EYE LUBRICANT [Concomitant]
     Indication: DRY EYE
     Route: 047
     Dates: start: 201512

REACTIONS (4)
  - Eye inflammation [Recovered/Resolved]
  - Withdrawal syndrome [Recovered/Resolved]
  - Ocular hyperaemia [Recovered/Resolved]
  - Eye pain [Recovered/Resolved]

NARRATIVE: CASE EVENT DATE: 201601
